FAERS Safety Report 9046329 (Version 2)
Quarter: 2013Q1

REPORT INFORMATION
  Report Type: Spontaneous
  Country: CZ (occurrence: CZ)
  Receive Date: 20130201
  Receipt Date: 20130213
  Transmission Date: 20140127
  Serious: Yes (Other)
  Sender: FDA-Public Use
  Company Number: CZ-JNJFOC-20130117092

PATIENT
  Sex: Female

DRUGS (3)
  1. DOXORUBICIN [Suspect]
     Indication: ADENOCARCINOMA OF THE CERVIX
     Route: 042
  2. DOXORUBICIN [Suspect]
     Indication: ADENOCARCINOMA OF THE CERVIX
     Route: 065
  3. CISPLATIN [Suspect]
     Indication: ADENOCARCINOMA OF THE CERVIX
     Route: 065

REACTIONS (3)
  - Ototoxicity [Unknown]
  - Haematotoxicity [Unknown]
  - Off label use [Unknown]
